FAERS Safety Report 9394516 (Version 3)
Quarter: 2013Q4

REPORT INFORMATION
  Report Type: Report from Study
  Country: AU (occurrence: AU)
  Receive Date: 20130711
  Receipt Date: 20131009
  Transmission Date: 20140711
  Serious: Yes (Other)
  Sender: FDA-Public Use
  Company Number: PHHY2013AU073296

PATIENT
  Age: 56 Year
  Sex: Female

DRUGS (2)
  1. ACLASTA [Suspect]
     Dosage: 5 MG
     Route: 042
  2. VITAMIN D [Concomitant]
     Dosage: UNK UKN, UNK

REACTIONS (3)
  - Renal failure chronic [Unknown]
  - Blood creatinine increased [Not Recovered/Not Resolved]
  - Incorrect drug administration duration [Unknown]
